FAERS Safety Report 6898215-6 (Version None)
Quarter: 2010Q3

REPORT INFORMATION
  Report Type: 
  Country: None (occurrence: None)
  Receive Date: 20100802
  Receipt Date: 20070926
  Transmission Date: 20110219
  Serious: Yes (Other)
  Sender: FDA-Public Use
  Company Number: US-PFIZER INC-2007080973

PATIENT
  Sex: Female
  Weight: 144.54 kg

DRUGS (8)
  1. LYRICA [Suspect]
     Indication: PAIN
     Dates: start: 20070601
  2. LANTUS [Concomitant]
  3. NOVOLOG [Concomitant]
  4. CRESTOR [Concomitant]
  5. ALL OTHER THERAPEUTIC PRODUCTS [Concomitant]
  6. ACETYLSALICYLIC ACID SRT [Concomitant]
  7. VITAMINS [Concomitant]
  8. ZOLPIDEM [Concomitant]

REACTIONS (5)
  - ANXIETY [None]
  - BLOOD CHOLESTEROL INCREASED [None]
  - DYSPNOEA [None]
  - INSOMNIA [None]
  - WEIGHT INCREASED [None]
